FAERS Safety Report 6278726-7 (Version None)
Quarter: 2009Q3

REPORT INFORMATION
  Report Type: 
  Country: None (occurrence: None)
  Receive Date: 20090721
  Receipt Date: 20090713
  Transmission Date: 20100115
  Serious: Yes (Death)
  Sender: FDA-Public Use
  Company Number: POMP-1000663

PATIENT
  Age: 23 Month
  Sex: Female
  Weight: 12.5 kg

DRUGS (1)
  1. MYOZYME [Suspect]
     Indication: GLYCOGEN STORAGE DISEASE TYPE II
     Dosage: 20 MG/KG, Q2W, INTRAVENOUS
     Route: 042
     Dates: start: 20080117

REACTIONS (2)
  - DISEASE COMPLICATION [None]
  - GLYCOGEN STORAGE DISEASE TYPE II [None]
